FAERS Safety Report 21131572 (Version 1)
Quarter: 2022Q3

REPORT INFORMATION
  Report Type: Spontaneous
  Country: US (occurrence: US)
  Receive Date: 20220726
  Receipt Date: 20220726
  Transmission Date: 20221026
  Serious: Yes (Hospitalization, Other)
  Sender: FDA-Public Use
  Company Number: US-STRIDES ARCOLAB LIMITED-2022SP004518

PATIENT
  Age: 36 Year
  Sex: Female

DRUGS (6)
  1. TACROLIMUS [Suspect]
     Active Substance: TACROLIMUS
     Indication: Lung transplant
     Dosage: UNK
     Route: 065
  2. MYCOPHENOLATE MOFETIL [Suspect]
     Active Substance: MYCOPHENOLATE MOFETIL
     Indication: Lung transplant
     Dosage: UNK
     Route: 065
  3. METHYLPREDNISOLONE [Suspect]
     Active Substance: METHYLPREDNISOLONE
     Indication: Lung transplant
     Dosage: UNK
     Route: 065
  4. CARFILZOMIB [Concomitant]
     Active Substance: CARFILZOMIB
     Indication: Lung transplant
     Dosage: UNK
     Route: 065
  5. RITUXIMAB [Concomitant]
     Active Substance: RITUXIMAB
     Indication: Lung transplant
     Dosage: UNK
     Route: 065
  6. BELATACEPT [Concomitant]
     Active Substance: BELATACEPT
     Indication: Lung transplant
     Dosage: UNK
     Route: 065

REACTIONS (2)
  - COVID-19 [Unknown]
  - Off label use [Unknown]
